FAERS Safety Report 9176024 (Version 1)
Quarter: 2013Q1

REPORT INFORMATION
  Report Type: Spontaneous
  Country: US (occurrence: US)
  Receive Date: 20130320
  Receipt Date: 20130320
  Transmission Date: 20140127
  Serious: Yes (Hospitalization, Other)
  Sender: FDA-Public Use
  Company Number: US-MYLANLABS-2013S1005653

PATIENT
  Age: 8 Year
  Sex: Male

DRUGS (5)
  1. MYCOPHENOLATE MOFETIL [Suspect]
     Indication: IMMUNOSUPPRESSION
     Dosage: 1600 MG/M2/DAY
  2. TACROLIMUS [Concomitant]
  3. PREDNISONE [Concomitant]
  4. METHYLPHENIDATE [Concomitant]
  5. LANSOPRAZOLE [Concomitant]

REACTIONS (1)
  - Enterocolitis [Recovering/Resolving]
